FAERS Safety Report 4738716-X (Version None)
Quarter: 2005Q3

REPORT INFORMATION
  Report Type: 
  Country: None (occurrence: None)
  Receive Date: 20050804
  Receipt Date: 20050722
  Transmission Date: 20060218
  Serious: Yes (Hospitalization)
  Sender: FDA-Public Use
  Company Number: 2005105580

PATIENT
  Age: 40 Year
  Sex: Female

DRUGS (4)
  1. SERTRALINE                 (SERTRALINE) [Suspect]
     Indication: ILL-DEFINED DISORDER
  2. DIAZEPAM [Suspect]
     Indication: ILL-DEFINED DISORDER
  3. TEMAZEPAM [Suspect]
     Indication: ILL-DEFINED DISORDER
  4. NITRAZEPAM [Suspect]
     Indication: ILL-DEFINED DISORDER

REACTIONS (6)
  - ELECTROCARDIOGRAM QT PROLONGED [None]
  - ELECTROCARDIOGRAM T WAVE INVERSION [None]
  - FATIGUE [None]
  - INTENTIONAL MISUSE [None]
  - OVERDOSE [None]
  - SOMNOLENCE [None]
